FAERS Safety Report 16016196 (Version 1)
Quarter: 2019Q1

REPORT INFORMATION
  Report Type: Spontaneous
  Country: AU (occurrence: AU)
  Receive Date: 20190228
  Receipt Date: 20190228
  Transmission Date: 20190418
  Serious: Yes (Other)
  Sender: FDA-Public Use
  Company Number: AU-TEVA-2019-AU-1018448

PATIENT
  Age: 52 Year
  Sex: Female

DRUGS (10)
  1. ARIPIPRAZOLE. [Suspect]
     Active Substance: ARIPIPRAZOLE
     Dosage: DOSAGE UNKNOWN
     Route: 065
  2. CLOZARIL [Suspect]
     Active Substance: CLOZAPINE
     Route: 065
  3. SODIUM VALPROATE [Suspect]
     Active Substance: VALPROATE SODIUM
     Route: 065
  4. ROSUVASTATIN. [Concomitant]
     Active Substance: ROSUVASTATIN
  5. MAGNESIUM [Concomitant]
     Active Substance: MAGNESIUM
  6. MAGNESIUM ASPARTATE [Concomitant]
     Active Substance: MAGNESIUM ASPARTATE
  7. COLECALCIFEROL [Concomitant]
     Active Substance: CHOLECALCIFEROL
  8. ASPIRIN. [Concomitant]
     Active Substance: ASPIRIN
  9. CLOMIPRAMINE HYDROCHLORIDE. [Suspect]
     Active Substance: CLOMIPRAMINE HYDROCHLORIDE
     Route: 065
  10. TIOTROPIUM BROMIDE [Concomitant]
     Active Substance: TIOTROPIUM BROMIDE

REACTIONS (11)
  - Atrioventricular block first degree [Unknown]
  - Electrocardiogram QT prolonged [Unknown]
  - Disease recurrence [Unknown]
  - Chronic obstructive pulmonary disease [Unknown]
  - C-reactive protein increased [Unknown]
  - Pulmonary valve incompetence [Unknown]
  - Seasonal allergy [Unknown]
  - Sinus tachycardia [Unknown]
  - Mitral valve incompetence [Unknown]
  - Tricuspid valve incompetence [Unknown]
  - Troponin increased [Unknown]
